FAERS Safety Report 7980381-2 (Version None)
Quarter: 2011Q4

REPORT INFORMATION
  Report Type: 
  Country: None (occurrence: None)
  Receive Date: 20111214
  Receipt Date: 20111201
  Transmission Date: 20120403
  Serious: Yes (Other)
  Sender: FDA-Public Use
  Company Number: US-CEPHALON-2011006070

PATIENT
  Sex: Female
  Weight: 66 kg

DRUGS (13)
  1. DICYCLOMINE [Concomitant]
  2. ATROPINE [Concomitant]
  3. HYDROCODONE [Concomitant]
  4. TRIAZOLAM [Concomitant]
  5. PANTOPRAZOLE [Concomitant]
  6. LOTRONEX [Concomitant]
  7. ADDERALL 5 [Concomitant]
  8. LAMOTRIGINE [Concomitant]
  9. LIPITOR [Concomitant]
  10. NUVIGIL [Suspect]
     Indication: MULTIPLE SCLEROSIS
     Route: 048
     Dates: start: 20110901, end: 20110901
  11. CITALOPRAM [Concomitant]
  12. ZOLPIDEM [Concomitant]
  13. XANAX [Concomitant]

REACTIONS (8)
  - DYSPHAGIA [None]
  - ABDOMINAL DISCOMFORT [None]
  - ABDOMINAL PAIN [None]
  - WEIGHT DECREASED [None]
  - BACK PAIN [None]
  - CONSTIPATION [None]
  - DIARRHOEA [None]
  - DECREASED APPETITE [None]
